FAERS Safety Report 7095841 (Version 2)
Quarter: 2014Q2

REPORT INFORMATION
  Report Type: Spontaneous
  Country: US (occurrence: None)
  Receive Date: 20090817
  Receipt Date: 20140604
  Transmission Date: 20141212
  Serious: Yes (Hospitalization, Other)
  Sender: FDA-Public Use
  Company Number: 2009S1006585

PATIENT
  Age: 72 Year
  Sex: Male

DRUGS (9)
  1. SODIUM PHOSPHATE [Suspect]
     Indication: COLONOSCOPY
     Dosage: ; PO
     Route: 048
     Dates: start: 2006, end: 2006
  2. GEMFIBROZOL (GEMFIBROZIL) [Concomitant]
  3. PRVACHOL (PRAVASTATIN SODIUM) [Concomitant]
  4. GLIPIZIDE (GLIPIZIDE) [Concomitant]
  5. ASPIRIN (ACETYLSALICYLIC ACID) [Concomitant]
  6. NOVOLOG (INSULIN ASPART) [Concomitant]
  7. DIOVAN (VALSARTAN) [Concomitant]
  8. HYDROCHLOROTHIAZIDE (HYDROCHLOROTHIAZIDE) [Concomitant]
  9. METFORMIN (METFORMIN) [Concomitant]

REACTIONS (7)
  - Renal failure [None]
  - Blood sodium decreased [None]
  - Renal tubular necrosis [None]
  - Hyperkalaemia [None]
  - Nephrogenic anaemia [None]
  - Metabolic acidosis [None]
  - Blood parathyroid hormone increased [None]
